FAERS Safety Report 22385196 (Version 1)
Quarter: 2023Q2

REPORT INFORMATION
  Report Type: Spontaneous
  Country: AR (occurrence: AR)
  Receive Date: 20230530
  Receipt Date: 20230530
  Transmission Date: 20230722
  Serious: Yes (Other)
  Sender: FDA-Public Use
  Company Number: AR-002147023-NVSC2023AR123036

PATIENT
  Age: 73 Year
  Sex: Female

DRUGS (2)
  1. NILOTINIB [Suspect]
     Active Substance: NILOTINIB
     Indication: Chronic myeloid leukaemia
     Dosage: 800 MG, QD
     Route: 065
     Dates: start: 20160715, end: 202208
  2. NILOTINIB [Suspect]
     Active Substance: NILOTINIB
     Indication: Peripheral arterial occlusive disease

REACTIONS (9)
  - White blood cell count decreased [Unknown]
  - Philadelphia chromosome positive [Unknown]
  - Peripheral arterial occlusive disease [Unknown]
  - Blood lactate dehydrogenase increased [Unknown]
  - Cytogenetic analysis abnormal [Unknown]
  - Neutrophil count increased [Unknown]
  - Platelet count decreased [Unknown]
  - Product use in unapproved indication [Unknown]
  - Therapy non-responder [Unknown]

NARRATIVE: CASE EVENT DATE: 20220801
